FAERS Safety Report 16096497 (Version 1)
Quarter: 2019Q1

REPORT INFORMATION
  Report Type: Report from Study
  Country: US (occurrence: US)
  Receive Date: 20190320
  Receipt Date: 20190320
  Transmission Date: 20190418
  Serious: Yes (Other)
  Sender: FDA-Public Use
  Company Number: US-MYLANLABS-2019M1025649

PATIENT

DRUGS (1)
  1. MELPHALAN HYDROCHLORIDE FOR INJECTION [Suspect]
     Active Substance: MELPHALAN HYDROCHLORIDE
     Indication: VITREOUS DISORDER
     Route: 050

REACTIONS (3)
  - Chorioretinal disorder [Unknown]
  - Retinal degeneration [Unknown]
  - Ocular toxicity [Unknown]
